FAERS Safety Report 5140942-5 (Version None)
Quarter: 2006Q4

REPORT INFORMATION
  Report Type: 
  Country: None (occurrence: None)
  Receive Date: 20061025
  Receipt Date: 20061025
  Transmission Date: 20070319
  Serious: Yes (Hospitalization)
  Sender: FDA-Public Use
  Company Number: None

PATIENT
  Age: 70 Year
  Sex: Male
  Weight: 75.2971 kg

DRUGS (1)
  1. WARFARIN SODIUM [Suspect]

REACTIONS (4)
  - CATHETER RELATED COMPLICATION [None]
  - COAGULOPATHY [None]
  - HAEMATURIA [None]
  - INJURY [None]
